FAERS Safety Report 7044363-X (Version None)
Quarter: 2010Q4

REPORT INFORMATION
  Report Type: 
  Country: None (occurrence: None)
  Receive Date: 20101014
  Receipt Date: 20091217
  Transmission Date: 20110411
  Serious: No
  Sender: FDA-Public Use
  Company Number: US-PFIZER INC-2009312283

PATIENT
  Sex: Male
  Weight: 49 kg

DRUGS (3)
  1. CLEOCIN [Suspect]
     Indication: GINGIVAL INFECTION
     Dosage: 10 ML, 3X/DAY
     Route: 048
     Dates: start: 20091216
  2. LANTUS [Concomitant]
     Dosage: FREQUENCY: 1X/DAY,
  3. NOVOLOG [Concomitant]

REACTIONS (1)
  - BLOOD GLUCOSE FLUCTUATION [None]
